FAERS Safety Report 19379916 (Version 1)
Quarter: 2021Q2

REPORT INFORMATION
  Report Type: Spontaneous
  Country: US (occurrence: US)
  Receive Date: 20210604
  Receipt Date: 20210604
  Transmission Date: 20210717
  Serious: No
  Sender: FDA-Public Use
  Company Number: None

PATIENT
  Age: 59 Year
  Sex: Male

DRUGS (1)
  1. AMLODIPINE (AMLODIPINE BESYLATE 10MG TAB) [Suspect]
     Active Substance: AMLODIPINE BESYLATE
     Route: 048
     Dates: start: 20200804, end: 20210416

REACTIONS (4)
  - Dyspnoea [None]
  - Oedema peripheral [None]
  - Blood glucose increased [None]
  - Peripheral swelling [None]

NARRATIVE: CASE EVENT DATE: 20210414
